FAERS Safety Report 11996624 (Version 6)
Quarter: 2017Q3

REPORT INFORMATION
  Report Type: Spontaneous
  Country: FR (occurrence: FR)
  Receive Date: 20160203
  Receipt Date: 20170919
  Transmission Date: 20171127
  Serious: Yes (Hospitalization, Other)
  Sender: FDA-Public Use
  Company Number: FR-SA-2016SA018424

PATIENT
  Age: 26 Year
  Sex: Female
  Weight: 45 kg

DRUGS (10)
  1. NOVANTRONE [Concomitant]
     Active Substance: MITOXANTRONE HYDROCHLORIDE
  2. REBIF [Concomitant]
     Active Substance: INTERFERON BETA-1A
  3. ORTHO EVRA [Concomitant]
     Active Substance: ETHINYL ESTRADIOL\NORELGESTROMIN
     Indication: CONTRACEPTION
     Dosage: PATCH CUT?DOSE/24 HR: 1
  4. COPAXONE [Concomitant]
     Active Substance: GLATIRAMER ACETATE
     Dates: start: 2007
  5. LEMTRADA [Suspect]
     Active Substance: ALEMTUZUMAB
     Indication: MULTIPLE SCLEROSIS
     Route: 042
     Dates: start: 201606, end: 201606
  6. MITOXANTRONE [Concomitant]
     Active Substance: MITOXANTRONE HYDROCHLORIDE
     Dates: start: 2007
  7. ORACILLINE [Concomitant]
     Active Substance: PENICILLIN V
     Indication: URINARY TRACT INFECTION
     Dates: start: 201601
  8. IMIGRANE [Concomitant]
     Active Substance: SUMATRIPTAN SUCCINATE
     Indication: MIGRAINE
     Dosage: DOSE/24 H: 8/ MONTH MAX
     Route: 048
  9. LEMTRADA [Suspect]
     Active Substance: ALEMTUZUMAB
     Indication: MULTIPLE SCLEROSIS
     Route: 042
     Dates: start: 20150422
  10. GILENYA [Concomitant]
     Active Substance: FINGOLIMOD HYDROCHLORIDE
     Dates: start: 20141118

REACTIONS (34)
  - Thrombocytopenia [Recovered/Resolved]
  - Leukopenia [Unknown]
  - Circulating anticoagulant positive [Unknown]
  - Immunoglobulins abnormal [Unknown]
  - Thyroid disorder [Unknown]
  - Upper respiratory tract infection [Unknown]
  - Hypovolaemic shock [Recovered/Resolved]
  - Breath sounds [Unknown]
  - Haptoglobin [Unknown]
  - Blood albumin decreased [Unknown]
  - Anti-thyroid antibody positive [Unknown]
  - Asthenia [Unknown]
  - Globulins increased [Unknown]
  - Cough [Unknown]
  - Splenic lesion [Recovered/Resolved]
  - Autoimmune pancytopenia [Unknown]
  - Nasopharyngitis [Recovered/Resolved]
  - Neutropenia [Not Recovered/Not Resolved]
  - Splenectomy [Recovered/Resolved]
  - Pain [Recovered/Resolved]
  - Monocytosis [Unknown]
  - Human herpes virus 6 serology positive [Unknown]
  - Epstein-Barr virus test positive [Unknown]
  - Lymphopenia [Unknown]
  - Tracheitis [Recovered/Resolved]
  - Pharyngeal erythema [Recovered/Resolved]
  - Red blood cell morphology abnormal [Unknown]
  - Cytomegalovirus test [Unknown]
  - Cognitive disorder [Unknown]
  - Headache [Unknown]
  - Hypokalaemia [Unknown]
  - Ecchymosis [Unknown]
  - Odynophagia [Unknown]
  - Abdominal tenderness [Unknown]

NARRATIVE: CASE EVENT DATE: 201601
